FAERS Safety Report 6326864-2 (Version None)
Quarter: 2009Q3

REPORT INFORMATION
  Report Type: 
  Country: None (occurrence: None)
  Receive Date: 20090825
  Receipt Date: 20090820
  Transmission Date: 20100115
  Serious: Yes (Death, Other)
  Sender: FDA-Public Use
  Company Number: US-ROXANE LABORATORIES, INC.-2009-RO-00854RO

PATIENT
  Age: 27 Year
  Sex: Female

DRUGS (11)
  1. DIAZEPAM [Suspect]
  2. METHADONE [Suspect]
     Indication: DRUG ABUSER
  3. METHADONE [Suspect]
     Indication: MUSCULOSKELETAL PAIN
     Dosage: 10 MG
  4. MORPHINE [Suspect]
     Indication: MUSCULOSKELETAL PAIN
     Dosage: 30 MG
  5. HYDROCODONE [Suspect]
     Indication: MUSCULOSKELETAL PAIN
     Route: 048
  6. HYDROCODONE [Suspect]
     Dosage: 40 MG
     Route: 048
  7. HYDROCODONE [Suspect]
     Dosage: 30 MG
     Route: 048
  8. OXYCODONE [Suspect]
     Indication: MUSCULOSKELETAL PAIN
     Dosage: 20 MG
  9. DOXEPIN HCL [Suspect]
  10. NORDIAZEPAM [Suspect]
  11. TEMAZEPAM [Suspect]

REACTIONS (5)
  - FALL [None]
  - MULTIPLE DRUG OVERDOSE [None]
  - MUSCLE STRAIN [None]
  - MUSCULOSKELETAL PAIN [None]
  - SYNCOPE [None]
